FAERS Safety Report 20168433 (Version 2)
Quarter: 2025Q4

REPORT INFORMATION
  Report Type: Spontaneous
  Country: EU (occurrence: EU)
  Receive Date: 20211210
  Receipt Date: 20251209
  Transmission Date: 20260118
  Serious: Yes (Other)
  Sender: AUROBINDO
  Company Number: EU-ALFASIGMA-2021.15009

PATIENT
  Age: 27 Year
  Sex: Female

DRUGS (7)
  1. LIDOCAINE [Suspect]
     Active Substance: LIDOCAINE
     Indication: Caesarean section
     Dosage: 3 MILLILITER (2 PERCENT)
     Route: 065
  2. LIDOCAINE [Suspect]
     Active Substance: LIDOCAINE
     Indication: Epidural analgesia
  3. FENTANYL [Suspect]
     Active Substance: FENTANYL
     Indication: Product used for unknown indication
     Dosage: UNK
     Route: 065
  4. OXYTOCIN [Suspect]
     Active Substance: OXYTOCIN
     Indication: Caesarean section
     Dosage: UNK
     Route: 065
  5. ROPIVACAINE [Suspect]
     Active Substance: ROPIVACAINE
     Indication: Caesarean section
     Dosage: 8 MILLILITER (0.2 PERCENT)
     Route: 065
  6. CEFAZOLIN [Suspect]
     Active Substance: CEFAZOLIN
     Indication: Product used for unknown indication
     Dosage: UNK
     Route: 065
  7. SUFENTANIL [Suspect]
     Active Substance: SUFENTANIL
     Indication: Product used for unknown indication
     Dosage: UNK
     Route: 065

REACTIONS (3)
  - Anaphylactic shock [Unknown]
  - Horner^s syndrome [Recovered/Resolved]
  - Maternal exposure during delivery [Unknown]
